FAERS Safety Report 14478632 (Version 1)
Quarter: 2018Q1

REPORT INFORMATION
  Report Type: Spontaneous
  Country: RU (occurrence: RU)
  Receive Date: 20180202
  Receipt Date: 20180202
  Transmission Date: 20180509
  Serious: Yes (Other)
  Sender: FDA-Public Use
  Company Number: RU-ASTRAZENECA-2018SE12479

PATIENT
  Age: 51 Year
  Sex: Female
  Weight: 64 kg

DRUGS (6)
  1. MEXIDOL [Concomitant]
  2. MYDOCALM [Concomitant]
     Active Substance: TOLPERISONE
  3. CEFAZOLIN [Concomitant]
     Active Substance: CEFAZOLIN
  4. FORXIGA [Suspect]
     Active Substance: DAPAGLIFLOZIN
     Indication: TYPE 2 DIABETES MELLITUS
     Route: 048
     Dates: start: 201701
  5. DIABETON [Concomitant]
     Active Substance: GLICLAZIDE
  6. SUPRADYN [Concomitant]
     Active Substance: ASCORBIC ACID\MINERALS\VITAMINS

REACTIONS (2)
  - Post procedural inflammation [Recovering/Resolving]
  - Intervertebral disc protrusion [Recovered/Resolved]
